FAERS Safety Report 9263811 (Version 1)
Quarter: 2013Q1

REPORT INFORMATION
  Report Type: Spontaneous
  Country: US (occurrence: None)
  Receive Date: 20121212
  Receipt Date: 20121212
  Transmission Date: 20140127
  Serious: No
  Sender: FDA-Public Use
  Company Number: 1211USA002441

PATIENT
  Age: 57 Year
  Sex: Male

DRUGS (7)
  1. PEGINTRON [Suspect]
     Indication: HEPATITIS C
     Dates: start: 20120928
  2. VICTRELIS [Suspect]
     Dates: start: 201210
  3. RIBAVIRIN [Suspect]
  4. FLOMAX (MORNIFLUMATE) (MORNIFLUMATE) [Concomitant]
  5. CENTRUM (MINERALS (UNSPECIFIED) (+) VITAMINS (UNSPECIFIED) [Concomitant]
  6. AATENOLOL (ATENOLOL) [Concomitant]
  7. DIGOXIN (DIGOXIN) [Concomitant]

REACTIONS (7)
  - Asthenia [None]
  - Peripheral coldness [None]
  - Rectal spasm [None]
  - Fatigue [None]
  - Chills [None]
  - Headache [None]
  - Product quality issue [None]
